FAERS Safety Report 16194856 (Version 2)
Quarter: 2019Q2

REPORT INFORMATION
  Report Type: Report from Study
  Country: TW (occurrence: TW)
  Receive Date: 20190415
  Receipt Date: 20190419
  Transmission Date: 20190711
  Serious: Yes (Hospitalization)
  Sender: FDA-Public Use
  Company Number: TW-BRISTOL-MYERS SQUIBB COMPANY-BMS-2019-036207

PATIENT
  Age: 59 Year
  Sex: Female
  Weight: 54 kg

DRUGS (13)
  1. DEXTROMETHORPHAN [Concomitant]
     Active Substance: DEXTROMETHORPHAN
     Indication: PRODUCT USED FOR UNKNOWN INDICATION
     Dosage: 120 MILLIGRAM
     Route: 048
     Dates: start: 20190305
  2. NIVOLUMAB [Suspect]
     Active Substance: NIVOLUMAB
     Indication: NON-SMALL CELL LUNG CANCER
     Dosage: 162 MILLIGRAM
     Route: 042
     Dates: start: 20190306, end: 20190319
  3. SILYMARIN                          /01131701/ [Concomitant]
     Indication: ALANINE AMINOTRANSFERASE INCREASED
     Route: 065
  4. IPILIMUMAB [Suspect]
     Active Substance: IPILIMUMAB
     Indication: NON-SMALL CELL LUNG CANCER
     Dosage: 54 MILLIGRAM
     Route: 042
     Dates: start: 20190306, end: 20190319
  5. AMLODIPINE [Concomitant]
     Active Substance: AMLODIPINE BESYLATE
     Indication: PRODUCT USED FOR UNKNOWN INDICATION
     Dosage: 5 MILLIGRAM
     Route: 048
     Dates: start: 20181210
  6. MOMETASONE [Concomitant]
     Active Substance: MOMETASONE
     Indication: RASH
     Dosage: 1 COAT
     Route: 061
     Dates: start: 20190319
  7. SILYMARIN                          /01131701/ [Concomitant]
     Indication: ASPARTATE AMINOTRANSFERASE INCREASED
     Dosage: 210 MILLIGRAM
     Route: 048
     Dates: start: 20190402
  8. METOCLOPRAMIDE. [Concomitant]
     Active Substance: METOCLOPRAMIDE
     Indication: DECREASED APPETITE
     Dosage: 10 MILLIGRAM
     Route: 042
     Dates: start: 20190404, end: 20190404
  9. AMPICILLIN AND SULBACTAM [Concomitant]
     Active Substance: AMPICILLIN SODIUM\SULBACTAM SODIUM
     Indication: PRODUCT USED FOR UNKNOWN INDICATION
     Dosage: 1 DOSAGE FORM
     Route: 042
     Dates: start: 20190404, end: 20190405
  10. FAMOTIDINE. [Concomitant]
     Active Substance: FAMOTIDINE
     Indication: RASH
     Dosage: 5 MILLIGRAM
     Route: 048
     Dates: start: 20190405
  11. LEVOCETIRIZINE [Concomitant]
     Active Substance: LEVOCETIRIZINE
     Indication: RASH
     Dosage: 5 MILLIGRAM
     Route: 048
     Dates: start: 20190405
  12. COUGH MIXTURE A [Concomitant]
     Indication: PRODUCT USED FOR UNKNOWN INDICATION
     Dosage: 30 MILLIGRAM
     Route: 065
     Dates: start: 20190402
  13. CLINDAMYCIN. [Concomitant]
     Active Substance: CLINDAMYCIN
     Indication: RASH
     Dosage: UNK
     Route: 061
     Dates: start: 20190404

REACTIONS (2)
  - Pneumonitis [Not Recovered/Not Resolved]
  - Dyspnoea [Recovered/Resolved]

NARRATIVE: CASE EVENT DATE: 20190403
